FAERS Safety Report 7841480-9 (Version None)
Quarter: 2011Q4

REPORT INFORMATION
  Report Type: 
  Country: None (occurrence: None)
  Receive Date: 20111025
  Receipt Date: 20111017
  Transmission Date: 20120403
  Serious: Yes (Hospitalization)
  Sender: FDA-Public Use
  Company Number: FR-JNJFOC-20111009056

PATIENT
  Sex: Female

DRUGS (6)
  1. MORPHINE SULFATE [Suspect]
     Indication: PAIN
     Route: 048
     Dates: start: 20110601, end: 20110603
  2. LYRICA [Concomitant]
     Indication: PRODUCT USED FOR UNKNOWN INDICATION
     Route: 048
     Dates: start: 20110505, end: 20110603
  3. DURAGESIC-100 [Suspect]
     Indication: PAIN
     Dosage: 100 UG/HR
     Route: 062
     Dates: start: 20110530, end: 20110603
  4. ABSTRAL [Suspect]
     Indication: PAIN
     Route: 060
     Dates: start: 20110505, end: 20110603
  5. LIDOCAINE [Concomitant]
     Indication: PRODUCT USED FOR UNKNOWN INDICATION
     Route: 062
     Dates: start: 20110530, end: 20110601
  6. ACETAMINOPHEN [Concomitant]
     Indication: PRODUCT USED FOR UNKNOWN INDICATION
     Route: 062

REACTIONS (5)
  - SOMNOLENCE [None]
  - OVERDOSE [None]
  - NEUROLOGICAL SYMPTOM [None]
  - TOXICITY TO VARIOUS AGENTS [None]
  - DRUG INEFFECTIVE [None]
